FAERS Safety Report 13835466 (Version 1)
Quarter: 2017Q3

REPORT INFORMATION
  Report Type: Spontaneous
  Country: US (occurrence: US)
  Receive Date: 20170804
  Receipt Date: 20170804
  Transmission Date: 20171127
  Serious: Yes (Hospitalization)
  Sender: FDA-Public Use
  Company Number: None

PATIENT
  Age: 29 Year
  Sex: Female
  Weight: 99 kg

DRUGS (1)
  1. CARMEX CHERRY LIP BALM BROAD SPECTRUM SPF 15 SUNSCREEN [Suspect]
     Active Substance: AVOBENZONE\HOMOSALATE\OCTISALATE\OCTOCRYLENE
     Indication: LIP DRY
     Dosage: ?          QUANTITY:1 1;OTHER FREQUENCY:TUBE;OTHER ROUTE:APPLIED TO LIPS?
     Dates: start: 20170731, end: 20170801

REACTIONS (4)
  - Urticaria [None]
  - Hypoaesthesia [None]
  - Lip oedema [None]
  - Hypersensitivity [None]

NARRATIVE: CASE EVENT DATE: 20170801
